FAERS Safety Report 16986050 (Version 1)
Quarter: 2019Q4

REPORT INFORMATION
  Report Type: Spontaneous
  Country: US (occurrence: US)
  Receive Date: 20190918
  Receipt Date: 20190918
  Transmission Date: 20200122
  Serious: No
  Sender: FDA-Public Use
  Company Number: None

PATIENT
  Age: 77 Year
  Sex: Male

DRUGS (1)
  1. INREBIC [Suspect]
     Active Substance: FEDRATINIB HYDROCHLORIDE
     Indication: MYELOFIBROSIS
     Route: 048
     Dates: start: 20190827, end: 20190909

REACTIONS (12)
  - Dizziness [None]
  - Gingival bleeding [None]
  - Back pain [None]
  - Hyperhidrosis [None]
  - Contusion [None]
  - Burning sensation [None]
  - Fatigue [None]
  - Abdominal pain [None]
  - Visual impairment [None]
  - Pruritus [None]
  - Dyspnoea [None]
  - Bone pain [None]

NARRATIVE: CASE EVENT DATE: 20190827
